FAERS Safety Report 20777689 (Version 2)
Quarter: 2022Q2

REPORT INFORMATION
  Report Type: Spontaneous
  Country: US (occurrence: US)
  Receive Date: 20220503
  Receipt Date: 20220504
  Transmission Date: 20220721
  Serious: No
  Sender: FDA-Public Use
  Company Number: US-MYLANLABS-2022M1029161

PATIENT
  Age: 60 Year
  Sex: Male
  Weight: 117.93 kg

DRUGS (2)
  1. WIXELA INHUB [Suspect]
     Active Substance: FLUTICASONE PROPIONATE\SALMETEROL XINAFOATE
     Indication: Wheezing
     Dosage: 500/50 MICROGRAM, BID, 1 PUFF BY MOUTH EVERY 12 HOURS
     Route: 055
     Dates: start: 20220414
  2. LOSARTAN [Concomitant]
     Active Substance: LOSARTAN
     Indication: Blood pressure management
     Dosage: 25 MILLIGRAM

REACTIONS (2)
  - Device malfunction [Unknown]
  - Wheezing [Unknown]

NARRATIVE: CASE EVENT DATE: 20220414
